FAERS Safety Report 12985227 (Version 3)
Quarter: 2017Q1

REPORT INFORMATION
  Report Type: Spontaneous
  Country: FR (occurrence: FR)
  Receive Date: 20161129
  Receipt Date: 20170124
  Transmission Date: 20170428
  Serious: Yes (Hospitalization)
  Sender: FDA-Public Use
  Company Number: FR-ROCHE-1860753

PATIENT
  Age: 2 Year
  Sex: Female

DRUGS (5)
  1. NEORAL [Concomitant]
     Active Substance: CYCLOSPORINE
     Indication: AUTOIMMUNE HEPATITIS
     Route: 048
     Dates: start: 20090918, end: 201303
  2. SOLUPRED (FRANCE) [Concomitant]
     Active Substance: PREDNISOLONE
     Indication: AUTOIMMUNE HEPATITIS
     Route: 048
     Dates: start: 200902, end: 2010
  3. TEGELINE [Concomitant]
     Active Substance: HUMAN IMMUNOGLOBULIN G
     Dosage: 0.4 G/KG
     Route: 065
  4. IMUREL [Concomitant]
     Active Substance: AZATHIOPRINE SODIUM
     Indication: AUTOIMMUNE HEPATITIS
     Route: 048
     Dates: start: 200902, end: 20140310
  5. MABTHERA [Suspect]
     Active Substance: RITUXIMAB
     Indication: AUTOIMMUNE HEPATITIS
     Dosage: 1 INJECTION WEEKLY AT THE DOSE OF 375MG/M2 FOR 4 WEEKS ON 18/FEB/2010, 25/FEB/2010, 03/MAR/2010 AND
     Route: 041
     Dates: start: 20100218

REACTIONS (4)
  - Off label use [Unknown]
  - Hypogammaglobulinaemia [Recovered/Resolved with Sequelae]
  - Product use issue [Unknown]
  - Secondary immunodeficiency [Recovered/Resolved with Sequelae]
